FAERS Safety Report 5003698-2 (Version None)
Quarter: 2006Q2

REPORT INFORMATION
  Report Type: 
  Country: None (occurrence: None)
  Receive Date: 20060516
  Receipt Date: 20060303
  Transmission Date: 20061013
  Serious: Yes (Death, Life-Threatening)
  Sender: FDA-Public Use
  Company Number: JP-MERCK-0603USA01598

PATIENT
  Age: 80 Year
  Sex: Female

DRUGS (9)
  1. PEPCID [Suspect]
     Indication: GASTRITIS
     Route: 042
     Dates: start: 20060217, end: 20060302
  2. PRODIF [Suspect]
     Indication: SYSTEMIC CANDIDA
     Route: 042
     Dates: start: 20060217, end: 20060302
  3. SOYBEAN OIL [Concomitant]
     Indication: MALNUTRITION
     Route: 042
     Dates: start: 20060121, end: 20060302
  4. MEDICINALPRODUCT NOT SPECIFIED BY SENDER [Concomitant]
     Indication: MALNUTRITION
     Route: 042
     Dates: start: 20060120, end: 20060308
  5. HUMULIN 70/30 [Concomitant]
     Indication: BLOOD GLUCOSE ABNORMAL
     Route: 042
     Dates: start: 20060120, end: 20060308
  6. MEDICINALPRODUCT NOT SPECIFIED BY SENDER [Concomitant]
     Indication: VITAMIN SUPPLEMENTATION
     Route: 042
     Dates: start: 20060120, end: 20060308
  7. SALTNIN [Concomitant]
     Indication: ELECTROLYTE SUBSTITUTION THERAPY
     Route: 042
     Dates: start: 20060124, end: 20060308
  8. METILON [Concomitant]
     Indication: PYREXIA
     Route: 042
     Dates: start: 20060217, end: 20060305
  9. PERDIPINE [Concomitant]
     Indication: BLOOD PRESSURE INCREASED
     Route: 042
     Dates: start: 20060303, end: 20060307

REACTIONS (4)
  - CEREBRAL INFARCTION [None]
  - CONDITION AGGRAVATED [None]
  - DISSEMINATED INTRAVASCULAR COAGULATION [None]
  - PLATELET COUNT DECREASED [None]
